FAERS Safety Report 18571951 (Version 6)
Quarter: 2021Q2

REPORT INFORMATION
  Report Type: Report from Study
  Country: AR (occurrence: AR)
  Receive Date: 20201202
  Receipt Date: 20210413
  Transmission Date: 20210717
  Serious: Yes (Hospitalization)
  Sender: FDA-Public Use
  Company Number: AR-EISAI MEDICAL RESEARCH-EC-2020-084672

PATIENT
  Age: 44 Year
  Sex: Female
  Weight: 69.8 kg

DRUGS (14)
  1. CARBOPLATIN. [Concomitant]
     Active Substance: CARBOPLATIN
     Dates: start: 20200806, end: 20201029
  2. LENVATINIB [Suspect]
     Active Substance: LENVATINIB
     Indication: NON-SMALL CELL LUNG CANCER
     Route: 048
     Dates: start: 20200806
  3. LACTULOSE. [Concomitant]
     Active Substance: LACTULOSE
     Dates: start: 20200813
  4. ACETAMINOPHEN. [Concomitant]
     Active Substance: ACETAMINOPHEN
     Dates: start: 20200813
  5. PEMBROLIZUMAB. [Suspect]
     Active Substance: PEMBROLIZUMAB
     Route: 041
     Dates: start: 20201119, end: 20201119
  6. ENOXAPARIN SODIUM. [Concomitant]
     Active Substance: ENOXAPARIN SODIUM
     Dates: start: 20200901
  7. PEMBROLIZUMAB. [Suspect]
     Active Substance: PEMBROLIZUMAB
     Indication: NON-SMALL CELL LUNG CANCER
     Route: 041
     Dates: start: 20200806, end: 20201029
  8. PEMBROLIZUMAB. [Suspect]
     Active Substance: PEMBROLIZUMAB
     Route: 041
     Dates: start: 20201210
  9. PEMETREXED. [Suspect]
     Active Substance: PEMETREXED
     Route: 041
     Dates: start: 20201210
  10. MEPREDNISONE [Concomitant]
     Active Substance: MEPREDNISONE
     Dates: start: 202006
  11. PEMETREXED. [Suspect]
     Active Substance: PEMETREXED
     Indication: NON-SMALL CELL LUNG CANCER
     Route: 041
     Dates: start: 20200806, end: 20201029
  12. PEMETREXED. [Suspect]
     Active Substance: PEMETREXED
     Route: 041
     Dates: start: 20201119, end: 20201119
  13. PHENYTOIN. [Concomitant]
     Active Substance: PHENYTOIN
     Dates: start: 202006
  14. FOLIC ACID. [Concomitant]
     Active Substance: FOLIC ACID
     Dates: start: 20200730

REACTIONS (1)
  - Oral pain [Recovered/Resolved with Sequelae]

NARRATIVE: CASE EVENT DATE: 20201119
